FAERS Safety Report 16601383 (Version 1)
Quarter: 2019Q3

REPORT INFORMATION
  Report Type: Spontaneous
  Country: FR (occurrence: FR)
  Receive Date: 20190719
  Receipt Date: 20190719
  Transmission Date: 20191004
  Serious: Yes (Hospitalization)
  Sender: FDA-Public Use
  Company Number: PHHY2019FR164351

PATIENT
  Age: 27 Year
  Sex: Male

DRUGS (8)
  1. ALPRAZOLAM MYLAN [Suspect]
     Active Substance: ALPRAZOLAM
     Indication: PRODUCT USED FOR UNKNOWN INDICATION
     Dosage: 0.75 MG, QD (MATIN, MIDI ET SOIR.)
     Route: 048
     Dates: start: 20190608
  2. RIFADINE [Suspect]
     Active Substance: RIFAMPIN
     Indication: BRUCELLOSIS
     Dosage: 900 MG, QD (LE MATIN)
     Route: 042
     Dates: start: 20190615
  3. BACTRIM [Suspect]
     Active Substance: SULFAMETHOXAZOLE\TRIMETHOPRIM
     Indication: BRUCELLOSIS
     Dosage: 2 DF, QD (1 CP LE MATIN 1 CP LE SOIR)
     Route: 048
     Dates: start: 20190615, end: 20190627
  4. OXYNORM [Suspect]
     Active Substance: OXYCODONE HYDROCHLORIDE
     Indication: PAIN
     Dosage: 10 MG, Q4H (SI BESOIN)
     Route: 048
     Dates: start: 20190608
  5. LOVENOX [Concomitant]
     Active Substance: ENOXAPARIN SODIUM
     Indication: PRODUCT USED FOR UNKNOWN INDICATION
     Dosage: UNK
     Route: 058
  6. DOXYCYCLINE SANDOZ [Suspect]
     Active Substance: DOXYCYCLINE
     Indication: BRUCELLOSIS
     Dosage: 200 MG, QD (LE MATIN)
     Route: 048
     Dates: start: 20190614
  7. LEDERFOLINE [Concomitant]
     Active Substance: LEUCOVORIN CALCIUM
     Indication: PRODUCT USED FOR UNKNOWN INDICATION
     Dosage: UNK
     Route: 048
  8. OXYCODONE MYLAN LP [Suspect]
     Active Substance: OXYCODONE
     Indication: PAIN
     Dosage: 60 MG, QD (LE MATIN ET LE SOIR)
     Route: 048
     Dates: start: 20190608

REACTIONS (3)
  - Condition aggravated [Not Recovered/Not Resolved]
  - Leukopenia [Not Recovered/Not Resolved]
  - Neutropenia [Not Recovered/Not Resolved]

NARRATIVE: CASE EVENT DATE: 20190609
